FAERS Safety Report 10200736 (Version 1)
Quarter: 2014Q2

REPORT INFORMATION
  Report Type: Spontaneous
  Country: US (occurrence: None)
  Receive Date: 20140523
  Receipt Date: 20140523
  Transmission Date: 20141212
  Serious: Yes (Disabling)
  Sender: FDA-Public Use
  Company Number: None

PATIENT
  Age: 30 Year
  Sex: Male
  Weight: 83.46 kg

DRUGS (1)
  1. CIPROFLOXACIN 500 MG [Suspect]
     Indication: SALMONELLOSIS
     Dosage: 1 PILLS TWICE DAILY TAKEN BY MOUTH
     Route: 048
     Dates: start: 20140517, end: 20140519

REACTIONS (9)
  - Muscle spasms [None]
  - Tendon pain [None]
  - Tendon discomfort [None]
  - Arthralgia [None]
  - Arthralgia [None]
  - Arthropathy [None]
  - Dysstasia [None]
  - Arthralgia [None]
  - Musculoskeletal disorder [None]
